FAERS Safety Report 8616668-X (Version None)
Quarter: 2012Q3

REPORT INFORMATION
  Report Type: 
  Country: None (occurrence: None)
  Receive Date: 20120823
  Receipt Date: 20120817
  Transmission Date: 20120928
  Serious: Yes (Hospitalization, Disabling, Other)
  Sender: FDA-Public Use
  Company Number: US-009507513-1203USA03325

PATIENT

DRUGS (9)
  1. FOSAMAX [Suspect]
     Indication: OSTEOPENIA
     Dosage: 10 MG, QD
     Route: 048
     Dates: start: 19980518
  2. FOSAMAX [Suspect]
     Dosage: 70 MG, QW
     Route: 048
     Dates: start: 20021101, end: 20080501
  3. FOSAMAX [Suspect]
  4. PREMARIN [Concomitant]
     Indication: HORMONE REPLACEMENT THERAPY
     Dosage: UNK
     Dates: start: 19900101, end: 19990101
  5. FOSAMAX [Suspect]
     Dosage: 70 MG, QW
     Route: 048
     Dates: start: 20021101, end: 20080501
  6. FOSAMAX [Suspect]
     Dosage: 10 MG, QD
     Route: 048
     Dates: start: 19980518
  7. FOSAMAX PLUS D [Suspect]
     Indication: OSTEOPOROSIS
     Route: 048
     Dates: start: 19960101, end: 20080101
  8. FOSAMAX PLUS D [Suspect]
     Indication: OSTEOPENIA
  9. FOSAMAX [Suspect]
     Indication: OSTEOPOROSIS
     Dosage: UNK
     Route: 048
     Dates: start: 19960101, end: 20080501

REACTIONS (70)
  - LOW TURNOVER OSTEOPATHY [None]
  - SYSTEMIC LUPUS ERYTHEMATOSUS [None]
  - KYPHOSIS [None]
  - CANDIDIASIS [None]
  - URINARY TRACT INFECTION [None]
  - URINARY INCONTINENCE [None]
  - MALABSORPTION [None]
  - ARTHRALGIA [None]
  - FRACTURE [None]
  - VITAMIN B12 DEFICIENCY [None]
  - HEADACHE [None]
  - FOOT FRACTURE [None]
  - OESOPHAGITIS [None]
  - CELLULITIS [None]
  - OSTEOMYELITIS [None]
  - STRESS FRACTURE [None]
  - HAND FRACTURE [None]
  - HYPOTHYROIDISM [None]
  - CALCIUM DEFICIENCY [None]
  - OSTEOPOROSIS [None]
  - HAEMORRHAGE [None]
  - FRACTURE DELAYED UNION [None]
  - POLYARTHRITIS [None]
  - CARDIAC MURMUR [None]
  - LUMBAR VERTEBRAL FRACTURE [None]
  - ABSCESS SOFT TISSUE [None]
  - SOFT TISSUE INFECTION [None]
  - FALL [None]
  - URTICARIA [None]
  - RASH [None]
  - NAUSEA [None]
  - HYPERTENSION [None]
  - PEPTIC ULCER [None]
  - GASTROOESOPHAGEAL REFLUX DISEASE [None]
  - ALOPECIA [None]
  - SKELETAL INJURY [None]
  - ENTEROCOCCAL INFECTION [None]
  - GOUT [None]
  - DIARRHOEA [None]
  - LEUKOPENIA [None]
  - TOOTH EXTRACTION [None]
  - CHOLECYSTITIS ACUTE [None]
  - HAEMORRHOIDS [None]
  - PULMONARY GRANULOMA [None]
  - MUSCLE SPASMS [None]
  - PNEUMONIA [None]
  - ASTHENIA [None]
  - INTERNATIONAL NORMALISED RATIO INCREASED [None]
  - VITAMIN D DEFICIENCY [None]
  - FEMUR FRACTURE [None]
  - DEVICE FAILURE [None]
  - DEVICE COMPONENT ISSUE [None]
  - INFLUENZA LIKE ILLNESS [None]
  - IRON DEFICIENCY [None]
  - ANAEMIA POSTOPERATIVE [None]
  - PANCREATITIS ACUTE [None]
  - DEPRESSION [None]
  - VOMITING [None]
  - ADVERSE DRUG REACTION [None]
  - UNDIFFERENTIATED CONNECTIVE TISSUE DISEASE [None]
  - VAGINAL INFECTION [None]
  - CATARACT [None]
  - WOUND INFECTION STAPHYLOCOCCAL [None]
  - DIVERTICULUM [None]
  - INCISION SITE INFECTION [None]
  - TENDONITIS [None]
  - MUSCULOSKELETAL PAIN [None]
  - INFECTION [None]
  - ELECTROLYTE IMBALANCE [None]
  - ANTIBIOTIC LEVEL ABOVE THERAPEUTIC [None]
